FAERS Safety Report 9371450 (Version 1)
Quarter: 2013Q2

REPORT INFORMATION
  Report Type: Spontaneous
  Country: US (occurrence: None)
  Receive Date: 20130626
  Receipt Date: 20130626
  Transmission Date: 20140414
  Serious: Yes (Death, Life-Threatening, Hospitalization, Disabling, Congenital Anomaly, Other)
  Sender: FDA-Public Use
  Company Number: None

PATIENT
  Age: 24 Year
  Sex: Female
  Weight: 86.18 kg

DRUGS (1)
  1. GENERESS FE [Suspect]
     Indication: CONTRACEPTION
     Dosage: 1      1 PER DAY
     Route: 048
     Dates: start: 20120801, end: 20130107

REACTIONS (2)
  - Cerebrovascular accident [None]
  - Transient ischaemic attack [None]
